FAERS Safety Report 6203908-X (Version None)
Quarter: 2009Q2

REPORT INFORMATION
  Report Type: 
  Country: None (occurrence: None)
  Receive Date: 20090527
  Receipt Date: 20090515
  Transmission Date: 20091009
  Serious: Yes (Hospitalization)
  Sender: FDA-Public Use
  Company Number: A0781060A

PATIENT
  Age: 46 Year
  Sex: Female
  Weight: 90.9 kg

DRUGS (13)
  1. AVANDIA [Suspect]
     Dosage: 8MG PER DAY
     Dates: start: 20041208, end: 20070901
  2. METFORMIN HCL [Concomitant]
     Dates: start: 20040601, end: 20060201
  3. GLUCOTROL [Concomitant]
     Dates: start: 20041201, end: 20070201
  4. LIPITOR [Concomitant]
     Dates: start: 20050801, end: 20060201
  5. SEROQUEL [Concomitant]
     Dates: start: 20050901, end: 20071001
  6. SYNTHROID [Concomitant]
  7. LEVOTHYROXINE SODIUM [Concomitant]
  8. PREMARIN [Concomitant]
  9. TRICOR [Concomitant]
  10. LISINOPRIL [Concomitant]
  11. PERCOCET [Concomitant]
  12. CARISOPRODOL [Concomitant]
  13. ASPIRIN [Concomitant]

REACTIONS (3)
  - ACUTE CORONARY SYNDROME [None]
  - CORONARY ARTERY DISEASE [None]
  - MYOCARDIAL INFARCTION [None]
